FAERS Safety Report 25096027 (Version 2)
Quarter: 2025Q1

REPORT INFORMATION
  Report Type: Spontaneous
  Country: US (occurrence: US)
  Receive Date: 20250319
  Receipt Date: 20250328
  Transmission Date: 20250409
  Serious: Yes (Hospitalization)
  Sender: SANOFI AVENTIS
  Company Number: US-SA-2025SA080970

PATIENT
  Sex: Male

DRUGS (4)
  1. ALPROLIX [Suspect]
     Active Substance: EFTRENONACOG ALFA
     Indication: Factor IX deficiency
     Dosage: INFUSE 8450 UNITS (7605-9295) SLOW IV PUSH EVERY 24 HOURS FOR 3 DAYS
     Route: 042
  2. ALPROLIX [Suspect]
     Active Substance: EFTRENONACOG ALFA
     Route: 042
  3. ALPROLIX [Suspect]
     Active Substance: EFTRENONACOG ALFA
     Dosage: INFUSE 8450 UNITS THEN TWICE WEEKLY FOR 4 WEEKS
     Route: 042
  4. ALPROLIX [Suspect]
     Active Substance: EFTRENONACOG ALFA
     Dosage: INFUSE 8450 UNITS RETURN TO WEEKLY PROPHYLAXIS AFTER 6 WEEK THERAPY.
     Route: 042

REACTIONS (2)
  - Hospitalisation [Unknown]
  - Haemorrhage [Unknown]
